FAERS Safety Report 19043571 (Version 1)
Quarter: 2021Q1

REPORT INFORMATION
  Report Type: Spontaneous
  Country: GB (occurrence: GB)
  Receive Date: 20210322
  Receipt Date: 20210322
  Transmission Date: 20210420
  Serious: Yes (Other)
  Sender: FDA-Public Use
  Company Number: NVSC2021GB057416

PATIENT
  Age: 34 Year
  Sex: Male
  Weight: 97 kg

DRUGS (1)
  1. PENICILLIN G SODIQUE [Suspect]
     Active Substance: PENICILLIN G SODIUM
     Indication: ILL-DEFINED DISORDER
     Route: 065
     Dates: start: 20210310

REACTIONS (2)
  - Adverse drug reaction [Unknown]
  - Urticaria [Unknown]

NARRATIVE: CASE EVENT DATE: 20210310
